FAERS Safety Report 7783661-9 (Version None)
Quarter: 2011Q3

REPORT INFORMATION
  Report Type: 
  Country: None (occurrence: None)
  Receive Date: 20110928
  Receipt Date: 20110921
  Transmission Date: 20111222
  Serious: Yes (Hospitalization, Other)
  Sender: FDA-Public Use
  Company Number: JP-BAYER-200910508BYL

PATIENT
  Age: 55 Year
  Sex: Female
  Weight: 54 kg

DRUGS (16)
  1. NEXAVAR [Suspect]
     Route: 048
     Dates: start: 20080411
  2. JUSO [Concomitant]
     Dosage: 3 G (DAILY DOSE), , ORAL
     Route: 048
     Dates: start: 20080416
  3. LASIX [Concomitant]
     Indication: HYPERTENSION
     Dosage: 40 MG (DAILY DOSE), , ORAL
     Route: 048
     Dates: start: 20080520, end: 20080603
  4. GENTAMICIN SULFATE [Concomitant]
     Dosage: 10 G (DAILY DOSE), , TRANSDERMAL
     Route: 062
     Dates: start: 20080414, end: 20080421
  5. KALIMATE [Concomitant]
     Dosage: 15 G (DAILY DOSE), , ORAL
     Route: 048
     Dates: start: 20080520, end: 20090401
  6. ALPROSTADIL [Concomitant]
     Route: 061
     Dates: start: 20080613, end: 20080623
  7. LASIX [Concomitant]
     Dosage: 20 MG (DAILY DOSE), , ORAL
     Route: 048
     Dates: start: 20081006, end: 20090401
  8. SODIUM BICARBONATE [Concomitant]
     Dosage: 3 G (DAILY DOSE), , ORAL
     Route: 048
     Dates: start: 20080416, end: 20080714
  9. ACETAMINOPHEN [Concomitant]
     Dosage: 400 MG (DAILY DOSE), , ORAL
     Route: 048
     Dates: start: 20080530, end: 20080714
  10. NEXAVAR [Suspect]
     Indication: RENAL CELL CARCINOMA
     Route: 048
     Dates: start: 20080402, end: 20080410
  11. LOXONIN [Concomitant]
     Dosage: 60 MG (DAILY DOSE), , ORAL
     Route: 048
     Dates: start: 20080426, end: 20080430
  12. SELTOUCH [Concomitant]
     Route: 062
     Dates: start: 20080520, end: 20080714
  13. ALPROSTADIL [Concomitant]
     Dosage: 30 G (DAILY DOSE), , TOPICAL
     Route: 061
     Dates: start: 20080507, end: 20080515
  14. MOBIC [Concomitant]
     Dosage: 10 MG (DAILY DOSE), , ORAL
     Route: 048
     Dates: start: 20080605, end: 20080714
  15. MUCOSTA [Concomitant]
     Dosage: 300 MG (DAILY DOSE), , ORAL
     Route: 048
     Dates: start: 20080424, end: 20080429
  16. FLOMOX [Concomitant]
     Dosage: 300 MG (DAILY DOSE), , ORAL
     Route: 048
     Dates: start: 20080424, end: 20080429

REACTIONS (18)
  - VOMITING [None]
  - NAUSEA [None]
  - ACIDOSIS [None]
  - PANCREATIC ENZYMES INCREASED [None]
  - ERYTHEMA [None]
  - OROPHARYNGEAL PAIN [None]
  - PALMAR-PLANTAR ERYTHRODYSAESTHESIA SYNDROME [None]
  - PYREXIA [None]
  - HYPERTENSION [None]
  - CANCER PAIN [None]
  - SKIN ULCER [None]
  - HERPES ZOSTER [None]
  - PURULENCE [None]
  - CONSTIPATION [None]
  - RENAL IMPAIRMENT [None]
  - RASH [None]
  - POST HERPETIC NEURALGIA [None]
  - OEDEMA PERIPHERAL [None]
